FAERS Safety Report 7740055-X (Version None)
Quarter: 2011Q3

REPORT INFORMATION
  Report Type: 
  Country: None (occurrence: None)
  Receive Date: 20110909
  Receipt Date: 20110830
  Transmission Date: 20111222
  Serious: Yes (Death)
  Sender: FDA-Public Use
  Company Number: JP-ROCHE-660987

PATIENT
  Age: 53 Year
  Sex: Female
  Weight: 43 kg

DRUGS (6)
  1. PYDOXAL [Concomitant]
     Route: 048
     Dates: start: 20060801, end: 20080101
  2. MEDROXIPROGESTERONE ACETATE [Concomitant]
     Route: 048
     Dates: start: 20060801, end: 20080101
  3. ASPIRIN [Concomitant]
     Route: 048
     Dates: start: 20060801, end: 20080101
  4. XELODA [Suspect]
     Dosage: 2 WEEKS ADMINSTRATION FOLLOWED BY 1 WEEK RST
     Route: 048
     Dates: start: 20070401, end: 20080101
  5. XELODA [Suspect]
     Indication: BREAST CANCER METASTATIC
     Dosage: DRUG REPORTED AS; XELODA 300, 3 WEEKS ADMINSTRATION FOLLOWED BY 1 WEEK RST
     Route: 048
     Dates: start: 20060801, end: 20070401
  6. CYCLOPHOSPHAMIDE [Concomitant]
     Dosage: 2 WEEKS ADMINSTRATION FOLLOWED BY 1 WEEK REST
     Route: 048
     Dates: start: 20070401, end: 20080101

REACTIONS (2)
  - MALIGNANT PLEURAL EFFUSION [None]
  - MALIGNANT ASCITES [None]
